FAERS Safety Report 10142888 (Version 2)
Quarter: 2014Q3

REPORT INFORMATION
  Report Type: Spontaneous
  Country: US (occurrence: US)
  Receive Date: 20140430
  Receipt Date: 20140808
  Transmission Date: 20150326
  Serious: Yes (Other)
  Sender: FDA-Public Use
  Company Number: US-BAYER-2014-062334

PATIENT
  Age: 27 Year
  Sex: Female
  Weight: 62.59 kg

DRUGS (2)
  1. YASMIN [Suspect]
     Active Substance: DROSPIRENONE\ETHINYL ESTRADIOL
     Indication: CONTRACEPTION
     Dosage: UNK
     Dates: start: 20031101, end: 2007
  2. WOMEN^S MULTI [Concomitant]

REACTIONS (3)
  - Depression [None]
  - Weight increased [None]
  - Retinal infarction [None]

NARRATIVE: CASE EVENT DATE: 2007
